FAERS Safety Report 18383813 (Version 2)
Quarter: 2020Q4

REPORT INFORMATION
  Report Type: Spontaneous
  Country: FR (occurrence: FR)
  Receive Date: 20201014
  Receipt Date: 20201106
  Transmission Date: 20210114
  Serious: Yes (Life-Threatening, Hospitalization, Other)
  Sender: FDA-Public Use
  Company Number: FR-MYLANLABS-2020M1086146

PATIENT
  Age: 12 Year
  Sex: Female

DRUGS (2)
  1. AMIODARONE [Suspect]
     Active Substance: AMIODARONE
     Indication: VENTRICULAR FIBRILLATION
     Dosage: UNK
     Route: 065
     Dates: start: 2014
  2. AMIODARONE [Suspect]
     Active Substance: AMIODARONE
     Indication: ARTERIAL DISORDER

REACTIONS (3)
  - Syncope [Recovered/Resolved]
  - Drug ineffective [Unknown]
  - Ventricular fibrillation [Recovered/Resolved]

NARRATIVE: CASE EVENT DATE: 201907
